FAERS Safety Report 5813710-6 (Version None)
Quarter: 2008Q3

REPORT INFORMATION
  Report Type: 
  Country: None (occurrence: None)
  Receive Date: 20080717
  Receipt Date: 20080708
  Transmission Date: 20090109
  Serious: Yes (Other)
  Sender: FDA-Public Use
  Company Number: CH-ROCHE-574896

PATIENT
  Sex: Female
  Weight: 57 kg

DRUGS (13)
  1. MIRCERA [Suspect]
     Route: 042
     Dates: start: 20080501, end: 20080601
  2. RECORMON [Concomitant]
     Dates: end: 20080101
  3. MYFORTIC [Concomitant]
     Route: 048
     Dates: end: 20080708
  4. SANDIMMUNE [Concomitant]
     Route: 048
  5. ZURCAL [Concomitant]
     Route: 048
  6. CALCITRIOL [Concomitant]
     Dosage: DRUG REPORTED AS CALCITRIOL SALMON. DOSE: 3 DOSE FORMS PER WEEK
     Route: 048
     Dates: start: 20071003
  7. CALCIUM ACETATE [Concomitant]
     Dosage: DRUG REPORTED AS ^CALCIUM AC PHOSPHATBI^.
     Route: 048
  8. SIMVASTATIN [Concomitant]
     Route: 048
  9. 1 CONCOMITANT DRUG [Concomitant]
     Dosage: DRUG REPORTED AS ^METO ZEROK^.
     Route: 048
  10. ENALAPRIL MALEATE [Concomitant]
     Route: 048
  11. RETIN-A [Concomitant]
  12. RETIN-A [Concomitant]
  13. VENOFER [Concomitant]
     Route: 042

REACTIONS (1)
  - AGRANULOCYTOSIS [None]
